FAERS Safety Report 9166100 (Version 1)
Quarter: 2013Q1

REPORT INFORMATION
  Report Type: Spontaneous
  Country: DK (occurrence: None)
  Receive Date: 20130301
  Receipt Date: 20130301
  Transmission Date: 20140127
  Serious: Yes (Other)
  Sender: FDA-Public Use
  Company Number: 2013-03071

PATIENT
  Age: 44 Year
  Sex: Female

DRUGS (6)
  1. VINORELBINE [Suspect]
     Indication: PRODUCT USED FOR UNKNOWN INDICATION
     Dates: end: 201002
  2. PACLITAXEL (ATLLC) (PACLITAXEL) UNK, UNKUNK [Suspect]
     Indication: PRODUCT USED FOR UNKNOWN INDICATION
     Dates: start: 201206
  3. GEMCITABINE (UNKNOWN) (GEMCITABINE) UNK, UNKUNK [Suspect]
     Dosage: FOURTH AND FITH LINE TREATMENT WITH HERCEPTIN WITH GEMCITABINE AND CURRENTLY ERIBULIN, RESPECTIVELY, UNKNOWN
     Dates: start: 201201
  4. TAXOTERE (DOCETAXEL) [Suspect]
     Indication: PRODUCT USED FOR UNKNOWN INDICATION
     Dates: start: 201206
  5. LAPATINIB (LAPATINIB) [Suspect]
     Indication: PRODUCT USED FOR UNKNOWN INDICATION
     Dosage: FOURTH AND FITH LINE TREATMENT WITH HERCEPTIN WITH GEMCITABINE AND CURRENTLY ERIBULIN, RESPECTIVELY
     Dates: start: 201105, end: 201201
  6. XELODA (CAPECITABINE) [Suspect]
     Indication: PRODUCT USED FOR UNKNOWN INDICATION
     Dosage: FOURTH AND FITH LINE TREATMENT WITH HERCEPTIN WITH GEMCITABINE AND CURRENTLY ERIBULIN, RESPECTIVELY,
     Dates: start: 201105, end: 201201

REACTIONS (4)
  - Haematotoxicity [None]
  - Ejection fraction abnormal [None]
  - Malignant neoplasm progression [None]
  - Breast cancer female [None]
